FAERS Safety Report 20711359 (Version 1)
Quarter: 2022Q2

REPORT INFORMATION
  Report Type: Spontaneous
  Country: US (occurrence: None)
  Receive Date: 20220414
  Receipt Date: 20220414
  Transmission Date: 20220721
  Serious: No
  Sender: FDA-Public Use
  Company Number: None

PATIENT
  Age: 16 Year
  Sex: Male

DRUGS (1)
  1. ADVATE [Suspect]
     Active Substance: ANTIHEMOPHILIC FACTOR, HUMAN RECOMBINANT
     Indication: Factor VIII deficiency
     Dosage: OTHER QUANTITY : 1083 UNITS;?FREQUENCY : AS NEEDED;?
     Route: 042
     Dates: start: 20170712

REACTIONS (3)
  - Haemorrhage [None]
  - Haematoma [None]
  - Device dislocation [None]

NARRATIVE: CASE EVENT DATE: 20220409
